FAERS Safety Report 4338153-6 (Version None)
Quarter: 2004Q2

REPORT INFORMATION
  Report Type: 
  Country: None (occurrence: None)
  Receive Date: 20040412
  Receipt Date: 20040412
  Transmission Date: 20050107
  Serious: No
  Sender: FDA-Public Use
  Company Number: None

PATIENT
  Age: 83 Year
  Sex: Male
  Weight: 79.8331 kg

DRUGS (10)
  1. WARFARIN SODIUM [Suspect]
     Indication: DEEP VEIN THROMBOSIS
     Dosage: 2.5 MG QD PO
     Route: 048
     Dates: start: 20010501, end: 20011101
  2. WARFARIN SODIUM [Suspect]
     Indication: DEEP VEIN THROMBOSIS
     Dosage: 2.5 MG QD PO
     Route: 048
     Dates: start: 20021101
  3. EFFEXOR [Concomitant]
  4. RANITIDINE [Concomitant]
  5. LISINOPRIL [Concomitant]
  6. DETROL [Concomitant]
  7. NORVASC [Concomitant]
  8. HYTRIN [Concomitant]
  9. HYDROCHLOROTHIAZIDE [Concomitant]
  10. LIPITOR [Concomitant]

REACTIONS (1)
  - FEELING COLD [None]
